FAERS Safety Report 16186304 (Version 1)
Quarter: 2019Q2

REPORT INFORMATION
  Report Type: Spontaneous
  Country: US (occurrence: US)
  Receive Date: 20190411
  Receipt Date: 20190411
  Transmission Date: 20190711
  Serious: No
  Sender: FDA-Public Use
  Company Number: US-PERRIGO-18US007661

PATIENT
  Age: 37 Year
  Sex: Female
  Weight: 113.83 kg

DRUGS (1)
  1. PSEUDOEPHEDRINE HYDROCHLORIDE. [Suspect]
     Active Substance: PSEUDOEPHEDRINE HYDROCHLORIDE
     Indication: SINUS CONGESTION
     Dosage: 120 MG, SINGLE
     Route: 048
     Dates: start: 20180726, end: 20180726

REACTIONS (4)
  - Abdominal pain upper [Recovering/Resolving]
  - Diarrhoea [Recovered/Resolved]
  - Blister [Not Recovered/Not Resolved]
  - Pruritus [Not Recovered/Not Resolved]

NARRATIVE: CASE EVENT DATE: 20180726
